FAERS Safety Report 11738394 (Version 1)
Quarter: 2015Q4

REPORT INFORMATION
  Report Type: Spontaneous
  Country: US (occurrence: US)
  Receive Date: 20151110
  Receipt Date: 20151110
  Transmission Date: 20160304
  Serious: No
  Sender: FDA-Public Use
  Company Number: US-ELI_LILLY_AND_COMPANY-US201111004205

PATIENT
  Age: 74 Year
  Sex: Female

DRUGS (2)
  1. FORTEO [Suspect]
     Active Substance: TERIPARATIDE
     Dosage: 20 UG, QD
  2. FORTEO [Suspect]
     Active Substance: TERIPARATIDE
     Indication: OSTEOPOROSIS
     Dosage: 20 UG, QD
     Route: 065
     Dates: start: 201011

REACTIONS (11)
  - Upper limb fracture [Unknown]
  - Fall [Unknown]
  - Contusion [Unknown]
  - Malaise [Recovered/Resolved]
  - Injury [Unknown]
  - Hypoaesthesia [Recovered/Resolved]
  - Eye contusion [Unknown]
  - Dysarthria [Recovered/Resolved]
  - Balance disorder [Recovered/Resolved]
  - Migraine [Recovered/Resolved]
  - Fall [Recovered/Resolved]

NARRATIVE: CASE EVENT DATE: 20120514
